FAERS Safety Report 10258976 (Version 1)
Quarter: 2014Q2

REPORT INFORMATION
  Report Type: Spontaneous
  Country: US (occurrence: US)
  Receive Date: 20140625
  Receipt Date: 20140625
  Transmission Date: 20141212
  Serious: Yes (Other)
  Sender: FDA-Public Use
  Company Number: US-GLAXOSMITHKLINE-A0963832A

PATIENT
  Age: 44 Year
  Sex: Female
  Weight: 64.01 kg

DRUGS (15)
  1. BENLYSTA [Suspect]
     Indication: SYSTEMIC LUPUS ERYTHEMATOSUS
     Dosage: 620MG CYCLIC
     Route: 042
     Dates: start: 201110, end: 201310
  2. SYNTHROID [Concomitant]
  3. PLAQUENIL [Concomitant]
     Indication: SYSTEMIC LUPUS ERYTHEMATOSUS
     Dosage: 200MG PER DAY
     Route: 048
  4. PROTONIX [Concomitant]
     Indication: GASTROOESOPHAGEAL REFLUX DISEASE
     Dosage: 40MG PER DAY
     Route: 048
  5. AMITRIPTYLINE [Concomitant]
  6. ZOVIRAX [Concomitant]
  7. CLARITIN D 24 HR [Concomitant]
     Indication: ASTHMA
     Dosage: 10MG PER DAY
     Route: 048
  8. VIVELLE-DOT [Concomitant]
  9. LEVSIN [Concomitant]
  10. ALBUTEROL [Concomitant]
  11. VICODIN [Concomitant]
  12. KLONOPIN [Concomitant]
  13. LASIX [Concomitant]
  14. LEVOTHYROXINE [Concomitant]
     Indication: HYPOTHYROIDISM
     Dosage: .15MG PER DAY
     Route: 048
  15. TYLENOL [Concomitant]

REACTIONS (8)
  - Headache [Recovered/Resolved]
  - Bacterial infection [Not Recovered/Not Resolved]
  - Erythema [Not Recovered/Not Resolved]
  - Peripheral swelling [Not Recovered/Not Resolved]
  - Feeling hot [Not Recovered/Not Resolved]
  - Movement disorder [Not Recovered/Not Resolved]
  - Limb operation [Not Recovered/Not Resolved]
  - Mycobacterium chelonae infection [Not Recovered/Not Resolved]
